FAERS Safety Report 24982497 (Version 4)
Quarter: 2025Q2

REPORT INFORMATION
  Report Type: Spontaneous
  Country: US (occurrence: US)
  Receive Date: 20250218
  Receipt Date: 20250604
  Transmission Date: 20250716
  Serious: Yes (Hospitalization, Disabling)
  Sender: PFIZER
  Company Number: US-PFIZER INC-202500033520

PATIENT
  Age: 38 Year
  Sex: Female
  Weight: 112.93 kg

DRUGS (3)
  1. TIVDAK [Suspect]
     Active Substance: TISOTUMAB VEDOTIN-TFTV
     Indication: Cervix carcinoma
     Dosage: 1.3 MG/KG, EVERY 3 WEEKS
     Route: 042
     Dates: start: 20240904, end: 20250203
  2. OXYCODONE [Concomitant]
     Active Substance: OXYCODONE
     Indication: Pain
  3. ELIQUIS [Concomitant]
     Active Substance: APIXABAN
     Indication: Thrombosis
     Dosage: 5 MG, 2X/DAY

REACTIONS (7)
  - Extravasation [Recovering/Resolving]
  - Skin ulcer [Recovering/Resolving]
  - Skin discolouration [Recovering/Resolving]
  - Pain in extremity [Recovering/Resolving]
  - Myalgia [Recovering/Resolving]
  - Soft tissue inflammation [Recovering/Resolving]
  - Oedema peripheral [Recovering/Resolving]

NARRATIVE: CASE EVENT DATE: 20250203
